FAERS Safety Report 6173380-7 (Version None)
Quarter: 2009Q2

REPORT INFORMATION
  Report Type: 
  Country: None (occurrence: None)
  Receive Date: 20090428
  Receipt Date: 20090420
  Transmission Date: 20091009
  Serious: Yes (Life-Threatening, Hospitalization)
  Sender: FDA-Public Use
  Company Number: GXKR2009GB04831

PATIENT
  Age: 49 Year
  Sex: Male
  Weight: 87 kg

DRUGS (6)
  1. GABAPENTN (NGX) (GABAPENTIN) [Suspect]
     Indication: DIABETIC NEUROPATHY
     Dosage: QD, ORAL
     Route: 048
     Dates: start: 20090304, end: 20090312
  2. ACETYLSALICYLIC ACID (ACETYLSALICYLIC ACID) [Concomitant]
  3. CANDESARTAN CILEXETIL [Concomitant]
  4. INSULIN LISPRO (INSULIN LISPRO) [Concomitant]
  5. SIMVASTATIN [Concomitant]
  6. AVIVA [Concomitant]

REACTIONS (1)
  - VENTRICULAR TACHYCARDIA [None]
